FAERS Safety Report 14759239 (Version 2)
Quarter: 2019Q1

REPORT INFORMATION
  Report Type: Spontaneous
  Country: US (occurrence: US)
  Receive Date: 20180413
  Receipt Date: 20190308
  Transmission Date: 20190417
  Serious: Yes (Other)
  Sender: FDA-Public Use
  Company Number: US-ASTRAZENECA-2018SE44624

PATIENT
  Age: 19841 Day
  Sex: Male

DRUGS (18)
  1. LORAZEPAM. [Concomitant]
     Active Substance: LORAZEPAM
  2. ZOLPIDEM [Concomitant]
     Active Substance: ZOLPIDEM\ZOLPIDEM TARTRATE
  3. NORVASC [Concomitant]
     Active Substance: AMLODIPINE BESYLATE
  4. KOMBIGLYZE XR [Suspect]
     Active Substance: METFORMIN HYDROCHLORIDE\SAXAGLIPTIN HYDROCHLORIDE
     Route: 048
     Dates: start: 2012
  5. ONGLYZA [Suspect]
     Active Substance: SAXAGLIPTIN HYDROCHLORIDE
     Route: 048
     Dates: start: 20100809, end: 20170114
  6. ENOXAPARIN [Concomitant]
     Active Substance: ENOXAPARIN
  7. ASPIRIN. [Concomitant]
     Active Substance: ASPIRIN
  8. PROCHLORPERAZINE. [Concomitant]
     Active Substance: PROCHLORPERAZINE
  9. CLOPIDOGREL [Concomitant]
     Active Substance: CLOPIDOGREL BISULFATE
  10. RESTORIL [Concomitant]
     Active Substance: TEMAZEPAM
  11. METOPROLOL. [Concomitant]
     Active Substance: METOPROLOL
  12. ONDANSETRON [Concomitant]
     Active Substance: ONDANSETRON
  13. AMITRIPTYLINE [Concomitant]
     Active Substance: AMITRIPTYLINE
  14. MORPHINE [Concomitant]
     Active Substance: MORPHINE
  15. ONGLYZA [Suspect]
     Active Substance: SAXAGLIPTIN HYDROCHLORIDE
     Route: 048
     Dates: start: 2012
  16. ONGLYZA [Suspect]
     Active Substance: SAXAGLIPTIN HYDROCHLORIDE
     Route: 048
     Dates: start: 20160114
  17. RAMELTEON [Concomitant]
     Active Substance: RAMELTEON
  18. GABAPENTIN. [Concomitant]
     Active Substance: GABAPENTIN

REACTIONS (5)
  - Cardiac failure congestive [Unknown]
  - Coronary artery stenosis [Unknown]
  - Coronary artery disease [Unknown]
  - Cardiac failure [Unknown]
  - Cardiovascular disorder [Unknown]

NARRATIVE: CASE EVENT DATE: 20170511
